FAERS Safety Report 8326878-7 (Version None)
Quarter: 2012Q2

REPORT INFORMATION
  Report Type: 
  Country: None (occurrence: None)
  Receive Date: 20120501
  Receipt Date: 20120416
  Transmission Date: 20120825
  Serious: Yes (Other)
  Sender: FDA-Public Use
  Company Number: US-JUTA GMBH-2012-06646

PATIENT
  Age: 61 Year
  Sex: Female

DRUGS (3)
  1. TRAZODONE HCL [Suspect]
     Indication: INSOMNIA
     Dosage: 25 MG, DAILY
     Route: 065
  2. CLOZAPINE [Suspect]
     Indication: SCHIZOPHRENIA, PARANOID TYPE
     Dosage: 500 MG, DAILY
     Route: 065
  3. FLUOXETINE HCL [Suspect]
     Indication: SCHIZOPHRENIA, PARANOID TYPE
     Dosage: 40 MG, DAILY
     Route: 065

REACTIONS (3)
  - CONSTIPATION [None]
  - DRUG INTERACTION [None]
  - ILEUS PARALYTIC [None]
